FAERS Safety Report 25947167 (Version 1)
Quarter: 2025Q4

REPORT INFORMATION
  Report Type: Spontaneous
  Country: EU (occurrence: EU)
  Receive Date: 20251022
  Receipt Date: 20251022
  Transmission Date: 20260117
  Serious: Yes (Other)
  Sender: RANBAXY
  Company Number: EU-AFSSAPS-CN2025000465

PATIENT
  Age: 73 Year
  Sex: Male
  Weight: 71 kg

DRUGS (16)
  1. ALLOPURINOL [Suspect]
     Active Substance: ALLOPURINOL
     Indication: Essential thrombocythaemia
     Dosage: 300 MILLIGRAM, DAILY
     Route: 048
     Dates: start: 20230717, end: 20250318
  2. ACETAMINOPHEN [Suspect]
     Active Substance: ACETAMINOPHEN
     Indication: Pain
     Dosage: 1000 MILLIGRAM, 1DOSE/ASNECESSA, TAKES VERY LITTLE
     Route: 048
  3. PANTOPRAZOLE [Suspect]
     Active Substance: PANTOPRAZOLE
     Indication: Product used for unknown indication
     Dosage: 20 MILLIGRAM, DAILY
     Route: 048
     Dates: start: 20240616
  4. ATORVASTATIN [Suspect]
     Active Substance: ATORVASTATIN
     Indication: Prophylaxis
     Dosage: 80 MILLIGRAM, DAILY
     Route: 048
     Dates: start: 202408
  5. HYDROXYUREA [Suspect]
     Active Substance: HYDROXYUREA
     Indication: Essential thrombocythaemia
     Dosage: 1000 MILLIGRAM, DAILY
     Route: 048
     Dates: start: 20230717, end: 20250318
  6. HYDROXYUREA [Suspect]
     Active Substance: HYDROXYUREA
     Route: 048
     Dates: start: 20250401
  7. KARDEGIC [Concomitant]
     Active Substance: ASPIRIN DL-LYSINE
     Indication: Thrombosis prophylaxis
     Dosage: 75 MILLIGRAM, DAILY
     Route: 048
  8. KARDEGIC [Concomitant]
     Active Substance: ASPIRIN DL-LYSINE
     Indication: Acute coronary syndrome
  9. BISOPROLOL [Concomitant]
     Active Substance: BISOPROLOL
     Indication: Atrial fibrillation
     Dosage: 2.5 MILLIGRAM, DAILY
     Route: 048
     Dates: end: 20250414
  10. BISOPROLOL [Concomitant]
     Active Substance: BISOPROLOL
     Route: 048
     Dates: start: 20250414
  11. APIXABAN [Concomitant]
     Active Substance: APIXABAN
     Indication: Atrial fibrillation
     Dosage: 2.5MG 1-0-1
     Route: 048
  12. FUROSEMIDE [Concomitant]
     Active Substance: FUROSEMIDE
     Indication: Cardiac failure
     Dosage: 40 MILLIGRAM, DAILY
     Route: 048
  13. LATANOPROST [Concomitant]
     Active Substance: LATANOPROST
     Indication: Glaucoma
     Dosage: 1 DROP, DAILY
     Route: 047
  14. TIMOLOL MALEATE [Concomitant]
     Active Substance: TIMOLOL MALEATE
     Indication: Glaucoma
     Dosage: 2 GTT DROPS, DAILY, 1-0-1
     Route: 047
  15. CHOLECALCIFEROL [Concomitant]
     Active Substance: CHOLECALCIFEROL
     Indication: Vitamin D
     Dosage: 50000 INTERNATIONAL UNIT, MONTHLY
     Route: 048
  16. POLYETHYLENE GLYCOLS [Concomitant]
     Active Substance: POLYETHYLENE GLYCOLS
     Indication: Constipation
     Dosage: 20 GRAM, 1DOSE/ASNECESSA, 2 SACHETS SB
     Route: 048

REACTIONS (2)
  - Hyperbilirubinaemia [Not Recovered/Not Resolved]
  - Condition aggravated [Not Recovered/Not Resolved]
